FAERS Safety Report 24347106 (Version 2)
Quarter: 2024Q4

REPORT INFORMATION
  Report Type: Spontaneous
  Country: JP (occurrence: JP)
  Receive Date: 20240921
  Receipt Date: 20241121
  Transmission Date: 20250115
  Serious: Yes (Death, Life-Threatening, Hospitalization, Other)
  Sender: UNITED THERAPEUTICS
  Company Number: JP-UNITED THERAPEUTICS-UNT-2024-024804

PATIENT
  Age: 74 Year
  Sex: Male

DRUGS (1)
  1. TYVASO [Suspect]
     Active Substance: TREPROSTINIL
     Indication: Pulmonary hypertension
     Dosage: UNK, QD
     Dates: start: 20230821, end: 20240803

REACTIONS (3)
  - Lung neoplasm malignant [Fatal]
  - Condition aggravated [Fatal]
  - Device electrical finding [Unknown]

NARRATIVE: CASE EVENT DATE: 20240803
